FAERS Safety Report 8928782 (Version 1)
Quarter: 2012Q4

REPORT INFORMATION
  Report Type: Spontaneous
  Country: US (occurrence: None)
  Receive Date: 20121126
  Receipt Date: 20121126
  Transmission Date: 20130627
  Serious: Yes (Other)
  Sender: FDA-Public Use
  Company Number: None

PATIENT
  Age: 62 Year
  Sex: Male
  Weight: 104.33 kg

DRUGS (1)
  1. FLOUROMETHALONE [Suspect]
     Indication: CHEMICAL BURNS OF EYE
     Route: 047
     Dates: start: 20121014, end: 20121021

REACTIONS (7)
  - Respiratory rate increased [None]
  - Dyspnoea [None]
  - Middle insomnia [None]
  - Tinnitus [None]
  - Rash macular [None]
  - Skin exfoliation [None]
  - Pain in extremity [None]
